FAERS Safety Report 7868093-7 (Version None)
Quarter: 2012Q1

REPORT INFORMATION
  Report Type: 
  Country: None (occurrence: None)
  Receive Date: 20111028
  Receipt Date: 20111021
  Transmission Date: 20120608
  Serious: Yes (Other)
  Sender: FDA-Public Use
  Company Number: BR-PFIZER INC-2011256416

PATIENT
  Age: 77 Year
  Sex: Male
  Weight: 81 kg

DRUGS (9)
  1. ACETYLSALICYLIC ACID [Concomitant]
     Dosage: 100 MG, 1X/DAY
  2. ENALAPRIL MALEATE [Suspect]
     Dosage: 10 MG, 1X/DAY
  3. ENALAPRIL MALEATE [Suspect]
     Dosage: UNK
  4. METFORMIN HYDROCHLORIDE/VILDAGLIPTIN [Suspect]
  5. CILOSTAZOL [Concomitant]
     Dosage: 100 MG, EVERY 12 HOURS BEFORE BREAKFAST
  6. NPH INSULIN [Suspect]
     Dosage: 30 IU IN THE MORNING AND 10 IU AT BEDTIME
  7. INSULIN [Suspect]
     Dosage: 8 IU, BEFORE BREAKFAST AND BEFORE DINNER
  8. INSULIN [Suspect]
     Dosage: 6 IU, 2X/DAY
  9. ATORVASTATIN CALCIUM [Suspect]
     Dosage: 20 MG, UNK

REACTIONS (4)
  - DIABETES MELLITUS INADEQUATE CONTROL [None]
  - OVERWEIGHT [None]
  - HYPERTENSION [None]
  - BLOOD TRIGLYCERIDES INCREASED [None]
